FAERS Safety Report 24247641 (Version 1)
Quarter: 2024Q3

REPORT INFORMATION
  Report Type: Spontaneous
  Country: CA (occurrence: CA)
  Receive Date: 20240826
  Receipt Date: 20240826
  Transmission Date: 20241016
  Serious: Yes (Life-Threatening, Hospitalization)
  Sender: ROCHE
  Company Number: CA-ROCHE-10000063971

PATIENT
  Sex: Female
  Weight: 64 kg

DRUGS (17)
  1. POLATUZUMAB VEDOTIN [Suspect]
     Active Substance: POLATUZUMAB VEDOTIN
     Indication: Product used for unknown indication
     Route: 042
  2. RITUXIMAB [Suspect]
     Active Substance: RITUXIMAB
     Indication: Product used for unknown indication
     Route: 042
  3. TAFASITAMAB [Suspect]
     Active Substance: TAFASITAMAB
     Indication: Product used for unknown indication
     Route: 042
  4. TREANDA [Suspect]
     Active Substance: BENDAMUSTINE HYDROCHLORIDE
     Indication: Product used for unknown indication
     Route: 042
  5. BUPROPION [Concomitant]
     Active Substance: BUPROPION
  6. CITALOPRAM [Concomitant]
     Active Substance: CITALOPRAM\CITALOPRAM HYDROBROMIDE
  7. CODEINE [Concomitant]
     Active Substance: CODEINE
  8. DEXAMETHASONE [Concomitant]
     Active Substance: DEXAMETHASONE
  9. FILGRASTIM [Concomitant]
     Active Substance: FILGRASTIM
  10. FLUTICASONE PROPIONATE\SALMETEROL XINAFOATE [Concomitant]
     Active Substance: FLUTICASONE PROPIONATE\SALMETEROL XINAFOATE
  11. MESALAMINE [Concomitant]
     Active Substance: MESALAMINE
  12. NYSTATIN [Concomitant]
     Active Substance: NYSTATIN
  13. ONDANSETRON [Concomitant]
     Active Substance: ONDANSETRON
  14. PANTOPRAZOLE [Concomitant]
     Active Substance: PANTOPRAZOLE
  15. PREGABALIN [Concomitant]
     Active Substance: PREGABALIN
  16. PREMARIN [Concomitant]
     Active Substance: ESTROGENS, CONJUGATED
  17. ROSUVASTATIN [Concomitant]
     Active Substance: ROSUVASTATIN\ROSUVASTATIN CALCIUM

REACTIONS (5)
  - Abdominal sepsis [Recovering/Resolving]
  - Febrile neutropenia [Recovering/Resolving]
  - Oral candidiasis [Recovering/Resolving]
  - Pneumonia pseudomonal [Recovering/Resolving]
  - Septic shock [Recovering/Resolving]
